FAERS Safety Report 7097829-0 (Version None)
Quarter: 2010Q4

REPORT INFORMATION
  Report Type: 
  Country: None (occurrence: None)
  Receive Date: 20101112
  Receipt Date: 20101102
  Transmission Date: 20110411
  Serious: Yes (Other)
  Sender: FDA-Public Use
  Company Number: GB-JNJFOC-20101101220

PATIENT
  Age: 4 Decade
  Sex: Male

DRUGS (2)
  1. REMICADE [Suspect]
     Indication: CROHN'S DISEASE
     Dosage: 1 DOSE
     Route: 042
  2. REMICADE [Suspect]
     Route: 042

REACTIONS (6)
  - CHILLS [None]
  - DYSPNOEA [None]
  - EMOTIONAL DISTRESS [None]
  - IMPULSIVE BEHAVIOUR [None]
  - INFUSION RELATED REACTION [None]
  - TREMOR [None]
